FAERS Safety Report 8174213-X (Version None)
Quarter: 2012Q1

REPORT INFORMATION
  Report Type: 
  Country: None (occurrence: None)
  Receive Date: 20120224
  Receipt Date: 20120207
  Transmission Date: 20120608
  Serious: Yes (Other)
  Sender: FDA-Public Use
  Company Number: FK201200382

PATIENT
  Age: 64 Year
  Sex: Female

DRUGS (2)
  1. FLUOROURACIL [Suspect]
     Indication: OESOPHAGEAL CARCINOMA
     Dosage: 700 MG/M2
  2. CISPLATIN [Suspect]
     Indication: OESOPHAGEAL CARCINOMA
     Dosage: 70 MG/M2

REACTIONS (2)
  - OESOPHAGEAL FISTULA [None]
  - MEDIASTINAL ABSCESS [None]
